FAERS Safety Report 7957417-8 (Version None)
Quarter: 2011Q4

REPORT INFORMATION
  Report Type: 
  Country: None (occurrence: None)
  Receive Date: 20111205
  Receipt Date: 20111129
  Transmission Date: 20120403
  Serious: Yes (Hospitalization, Other)
  Sender: FDA-Public Use
  Company Number: US-ROXANE LABORATORIES, INC.-2011-RO-01707RO

PATIENT
  Age: 51 Year
  Sex: Male

DRUGS (3)
  1. PREDNISONE TAB [Suspect]
     Indication: AUTOIMMUNE PANCREATITIS
     Dosage: 50 MG
     Route: 048
  2. PREDNISONE TAB [Suspect]
     Indication: AUTOIMMUNE HEPATITIS
     Route: 048
  3. AZATHIOPRINE [Suspect]
     Indication: PANCREATIC PSEUDOCYST

REACTIONS (2)
  - PANCREATITIS ACUTE [None]
  - PANCREATIC PSEUDOCYST [None]
